FAERS Safety Report 5316410-4 (Version None)
Quarter: 2007Q2

REPORT INFORMATION
  Report Type: 
  Country: None (occurrence: None)
  Receive Date: 20070504
  Receipt Date: 20070423
  Transmission Date: 20071010
  Serious: Yes (Life-Threatening, Other)
  Sender: FDA-Public Use
  Company Number: JP-BAYER-200712346GDS

PATIENT
  Age: 53 Year
  Sex: Female

DRUGS (3)
  1. BUFFERIN [Suspect]
     Indication: NASOPHARYNGITIS
     Route: 065
  2. ALPINY SUPPOSITORIES (ACETAMINOPHEN) [Suspect]
     Indication: NASOPHARYNGITIS
     Route: 065
  3. LULU [Suspect]
     Indication: NASOPHARYNGITIS
     Route: 065

REACTIONS (1)
  - TOXIC EPIDERMAL NECROLYSIS [None]
